FAERS Safety Report 7209449-5 (Version None)
Quarter: 2010Q4

REPORT INFORMATION
  Report Type: 
  Country: None (occurrence: None)
  Receive Date: 20101222
  Receipt Date: 20101215
  Transmission Date: 20110411
  Serious: Yes (Hospitalization)
  Sender: FDA-Public Use
  Company Number: UTC-003365

PATIENT
  Age: 69 Year
  Sex: Male
  Weight: 64.9 kg

DRUGS (5)
  1. REMODULIN [Suspect]
     Indication: PULMONARY ARTERIAL HYPERTENSION
     Dosage: 40.32 MCG (0.028 MCG, 1 IN 1 MIN),SUBCUTANEOUS
     Route: 058
     Dates: start: 20100813
  2. DIURETICS (DIURETICS) [Concomitant]
  3. PLAVIX [Concomitant]
  4. CIALIS [Concomitant]
  5. ASPIRIN [Concomitant]

REACTIONS (3)
  - CHRONIC OBSTRUCTIVE PULMONARY DISEASE [None]
  - HYPOXIA [None]
  - RESPIRATORY FAILURE [None]
